FAERS Safety Report 8151096-5 (Version None)
Quarter: 2012Q1

REPORT INFORMATION
  Report Type: 
  Country: None (occurrence: None)
  Receive Date: 20120220
  Receipt Date: 20120210
  Transmission Date: 20120608
  Serious: Yes (Other)
  Sender: FDA-Public Use
  Company Number: TR-ASTRAZENECA-2012SE09463

PATIENT
  Age: 6 Year
  Sex: Male
  Weight: 20 kg

DRUGS (2)
  1. CITANEST [Suspect]
     Dosage: 6 MG/KG
     Route: 062
  2. PROPOFOL [Suspect]
     Indication: SEDATIVE THERAPY
     Route: 042

REACTIONS (1)
  - METHAEMOGLOBINAEMIA [None]
